FAERS Safety Report 5445121-X (Version None)
Quarter: 2007Q3

REPORT INFORMATION
  Report Type: 
  Country: None (occurrence: None)
  Receive Date: 20070730
  Receipt Date: 20070523
  Transmission Date: 20080115
  Serious: Yes (Other)
  Sender: FDA-Public Use
  Company Number: 239061

PATIENT
  Age: 90 Year
  Sex: Male

DRUGS (1)
  1. RITUXAN [Suspect]
     Indication: WALDENSTROM'S MACROGLOBULINAEMIA
     Dosage: 1/WEEK, INTRAVENOUS
     Route: 042
     Dates: start: 20000926

REACTIONS (3)
  - LYMPHOPENIA [None]
  - PNEUMONIA [None]
  - WALDENSTROM'S MACROGLOBULINAEMIA [None]
